FAERS Safety Report 22064125 (Version 1)
Quarter: 2023Q1

REPORT INFORMATION
  Report Type: Report from Study
  Country: US (occurrence: US)
  Receive Date: 20230306
  Receipt Date: 20230306
  Transmission Date: 20230418
  Serious: No
  Sender: FDA-Public Use
  Company Number: US-002147023-NVSC2023US048239

PATIENT
  Sex: Male

DRUGS (1)
  1. ILARIS [Suspect]
     Active Substance: CANAKINUMAB
     Indication: Juvenile idiopathic arthritis
     Dosage: 240 MG, OTHER, Q4W (EVERY 4 WEEKS)
     Route: 058
     Dates: start: 20220423

REACTIONS (2)
  - Pain [Unknown]
  - Product dose omission issue [Unknown]
